FAERS Safety Report 6079271-4 (Version None)
Quarter: 2009Q1

REPORT INFORMATION
  Report Type: 
  Country: None (occurrence: None)
  Receive Date: 20090216
  Receipt Date: 20090204
  Transmission Date: 20090719
  Serious: Yes (Life-Threatening, Hospitalization)
  Sender: FDA-Public Use
  Company Number: FR-WYE-H07911809

PATIENT
  Sex: Male

DRUGS (17)
  1. INIPOMP [Suspect]
     Route: 048
     Dates: start: 20080529, end: 20081219
  2. TAHOR [Suspect]
     Route: 048
     Dates: start: 20080417, end: 20081219
  3. KEPPRA [Suspect]
     Route: 048
     Dates: start: 20080530, end: 20081229
  4. LASILIX [Suspect]
     Route: 048
     Dates: start: 20080601
  5. DILTIAZEM [Suspect]
     Route: 048
     Dates: start: 20070418
  6. RENAGEL [Concomitant]
     Dosage: UNKNOWN
  7. SPECIAFOLDINE [Concomitant]
     Dosage: UNKNOWN
  8. ZOPHREN [Concomitant]
     Dosage: UNKNOWN
  9. GAVISCON [Concomitant]
     Dosage: UNKNOWN
  10. MACROGOL [Concomitant]
     Dosage: UNKNOWN
  11. ARANESP [Concomitant]
     Dosage: UNKNOWN
  12. CALCIDOSE [Concomitant]
     Dosage: UNKNOWN
  13. OXYNORM [Concomitant]
     Dosage: UNKNOWN
  14. COLCHICINE [Suspect]
     Route: 048
     Dates: start: 20080530, end: 20081219
  15. VASTAREL [Suspect]
     Route: 048
     Dates: start: 20080530, end: 20081219
  16. ENERGIX B [Suspect]
     Dosage: UNKNOWN
     Route: 058
     Dates: start: 20080701, end: 20080701
  17. NIAOULI OIL/QUININE BENZOATE/THIAMINE HYDROCHLORIDE [Suspect]
     Indication: MUSCLE SPASMS
     Route: 048
     Dates: start: 20080529, end: 20081219

REACTIONS (3)
  - MOUTH HAEMORRHAGE [None]
  - OROPHARYNGEAL BLISTERING [None]
  - THROMBOCYTOPENIC PURPURA [None]
